FAERS Safety Report 21076153 (Version 1)
Quarter: 2022Q3

REPORT INFORMATION
  Report Type: Spontaneous
  Country: IL (occurrence: IL)
  Receive Date: 20220713
  Receipt Date: 20220713
  Transmission Date: 20221027
  Serious: Yes (Hospitalization, Other)
  Sender: FDA-Public Use
  Company Number: IL-PFIZER INC-PV202200019114

PATIENT
  Age: 50 Year
  Sex: Female

DRUGS (10)
  1. MEKTOVI [Suspect]
     Active Substance: BINIMETINIB
     Indication: Metastatic malignant melanoma
     Dosage: UNK
     Dates: start: 202108
  2. MEKTOVI [Suspect]
     Active Substance: BINIMETINIB
     Dosage: FULL DOSE
     Dates: start: 202112
  3. BRAFTOVI [Suspect]
     Active Substance: ENCORAFENIB
     Indication: Metastatic malignant melanoma
     Dosage: UNK
     Dates: start: 202108
  4. BRAFTOVI [Suspect]
     Active Substance: ENCORAFENIB
     Dosage: 50% DOSE
     Dates: start: 202112
  5. BRAFTOVI [Suspect]
     Active Substance: ENCORAFENIB
     Dosage: FULL DOSE
  6. BRAFTOVI [Suspect]
     Active Substance: ENCORAFENIB
     Dosage: 50% OF DOSE, 3X/DAY AND AFTERWARDS ADDITIONAL ONE PILL EVERY TWO WEEKS
  7. BRAFTOVI [Suspect]
     Active Substance: ENCORAFENIB
     Dosage: 375 MG, DAILY
  8. ATEZOLIZUMAB [Suspect]
     Active Substance: ATEZOLIZUMAB
     Dosage: UNK
     Dates: start: 202111
  9. VEMURAFENIB [Suspect]
     Active Substance: VEMURAFENIB
     Dosage: UNK
     Dates: start: 202111
  10. COBIMETINIB [Suspect]
     Active Substance: COBIMETINIB
     Dosage: UNK
     Dates: start: 202111

REACTIONS (12)
  - Renal impairment [Recovering/Resolving]
  - Rash [Unknown]
  - Pyrexia [Recovered/Resolved]
  - Hypotension [Unknown]
  - Asthenia [Unknown]
  - Liver function test abnormal [Recovering/Resolving]
  - C-reactive protein increased [Recovering/Resolving]
  - Serum ferritin increased [Recovering/Resolving]
  - Arthralgia [Unknown]
  - Constipation [Unknown]
  - Condition aggravated [Unknown]
  - Blood pressure decreased [Unknown]
